FAERS Safety Report 6522277-9 (Version None)
Quarter: 2009Q4

REPORT INFORMATION
  Report Type: 
  Country: None (occurrence: None)
  Receive Date: 20091229
  Receipt Date: 20091229
  Transmission Date: 20100525
  Serious: Yes (Hospitalization)
  Sender: FDA-Public Use
  Company Number: None

PATIENT
  Age: 71 Year
  Sex: Male
  Weight: 59 kg

DRUGS (1)
  1. WARFARIN [Suspect]
     Indication: PROPHYLAXIS
     Dosage: 0.5MG PO
     Route: 048
     Dates: start: 20091028

REACTIONS (6)
  - DECREASED APPETITE [None]
  - EPISTAXIS [None]
  - HAEMATOCHEZIA [None]
  - HAEMOPTYSIS [None]
  - INTERNATIONAL NORMALISED RATIO INCREASED [None]
  - NAUSEA [None]
